FAERS Safety Report 15532212 (Version 1)
Quarter: 2018Q4

REPORT INFORMATION
  Report Type: Spontaneous
  Country: RO (occurrence: RO)
  Receive Date: 20181019
  Receipt Date: 20181019
  Transmission Date: 20190205
  Serious: Yes (Other)
  Sender: FDA-Public Use
  Company Number: RO-CELLTRION INC.-2018RO023220

PATIENT

DRUGS (1)
  1. INFLIXIMAB PFIZER (UNKNOWN) [Suspect]
     Active Substance: INFLIXIMAB
     Indication: CROHN^S DISEASE
     Dosage: 13-STEP DESENSITIZATION PROTOCOL
     Route: 065

REACTIONS (4)
  - C-reactive protein increased [Unknown]
  - Arthralgia [Unknown]
  - Complement factor C3 decreased [Unknown]
  - Serum sickness-like reaction [Unknown]
